FAERS Safety Report 9738534 (Version 1)
Quarter: 2013Q4

REPORT INFORMATION
  Report Type: Spontaneous
  Country: US (occurrence: US)
  Receive Date: 20131209
  Receipt Date: 20131209
  Transmission Date: 20140711
  Serious: Yes (Other)
  Sender: FDA-Public Use
  Company Number: PHHY2013US138160

PATIENT
  Age: 72 Year
  Sex: Male

DRUGS (7)
  1. BACLOFEN [Suspect]
     Indication: MUSCLE SPASTICITY
     Route: 048
  2. TIZANIDINE [Suspect]
     Indication: MUSCLE SPASTICITY
  3. DIAZEPAM [Suspect]
     Indication: MUSCLE SPASTICITY
  4. DANTROLENE [Suspect]
     Indication: MUSCLE SPASTICITY
  5. BACLOFEN INTRATHECAL [Suspect]
     Indication: MUSCLE SPASTICITY
     Dosage: 75 UG, UNK
     Route: 037
  6. BACLOFEN INTRATHECAL [Suspect]
     Dosage: 100 UG, UNK
     Route: 037
  7. BACLOFEN INTRATHECAL [Suspect]
     Dosage: 1700 UG, UNK
     Route: 037

REACTIONS (9)
  - Muscle spasticity [Recovering/Resolving]
  - Pain in extremity [Recovering/Resolving]
  - Muscle spasms [Recovering/Resolving]
  - Drug ineffective [Unknown]
  - Gait disturbance [Recovering/Resolving]
  - Malaise [Recovering/Resolving]
  - Vomiting [Recovering/Resolving]
  - Device related infection [Recovering/Resolving]
  - Nausea [Recovering/Resolving]
